FAERS Safety Report 10585300 (Version 1)
Quarter: 2014Q4

REPORT INFORMATION
  Report Type: Spontaneous
  Country: IT (occurrence: None)
  Receive Date: 20141113
  Receipt Date: 20141113
  Transmission Date: 20150529
  Serious: Yes (Hospitalization)
  Sender: FDA-Public Use
  Company Number: VAL_03554_2014

PATIENT
  Age: 70 Year
  Sex: Female

DRUGS (13)
  1. CANDESARTAN CILEXETIL. [Concomitant]
     Active Substance: CANDESARTAN CILEXETIL
  2. ATENOLOLO [Concomitant]
     Active Substance: ATENOLOL
  3. MINITRAN [Concomitant]
     Active Substance: NITROGLYCERIN
  4. ANTRA [Concomitant]
     Active Substance: OMEPRAZOLE
  5. INEGY [Concomitant]
     Active Substance: EZETIMIBE\SIMVASTATIN
  6. CALCIUM [Concomitant]
     Active Substance: CALCIUM
  7. HUMALOG [Concomitant]
     Active Substance: INSULIN LISPRO
  8. EUTIROX [Concomitant]
     Active Substance: LEVOTHYROXINE SODIUM
  9. ROCALTROL [Suspect]
     Active Substance: CALCITRIOL
     Indication: OSTEOPOROSIS
     Route: 048
     Dates: start: 20140907, end: 20140909
  10. SEACOR [Concomitant]
     Active Substance: OMEGA-3 FATTY ACIDS
  11. SANDIMMUN NEORAL [Concomitant]
     Active Substance: CYCLOSPORINE
  12. CARDIOASPIRIN [Concomitant]
     Active Substance: ASPIRIN
  13. ZYLORIC [Concomitant]
     Active Substance: ALLOPURINOL

REACTIONS (1)
  - Hypercalcaemia [None]

NARRATIVE: CASE EVENT DATE: 20140907
